FAERS Safety Report 15587955 (Version 2)
Quarter: 2018Q4

REPORT INFORMATION
  Report Type: Spontaneous
  Country: JP (occurrence: JP)
  Receive Date: 20181105
  Receipt Date: 20181128
  Transmission Date: 20190205
  Serious: Yes (Hospitalization, Other)
  Sender: FDA-Public Use
  Company Number: JP-SUCAMPO PHARMACEUTICALS INC.-SPI201801021

PATIENT
  Age: 7 Decade
  Sex: Female

DRUGS (2)
  1. AMITIZA [Suspect]
     Active Substance: LUBIPROSTONE
     Indication: CONSTIPATION
     Dosage: 24 MCG, QD
     Route: 048
  2. AMITIZA [Suspect]
     Active Substance: LUBIPROSTONE
     Dosage: 24 MCG, BID
     Route: 048

REACTIONS (2)
  - Metabolic encephalopathy [Unknown]
  - Altered state of consciousness [Recovering/Resolving]
